FAERS Safety Report 5298941-9 (Version None)
Quarter: 2007Q2

REPORT INFORMATION
  Report Type: 
  Country: None (occurrence: None)
  Receive Date: 20070410
  Receipt Date: 20070328
  Transmission Date: 20071010
  Serious: Yes (Other)
  Sender: FDA-Public Use
  Company Number: 2007-155541-NL

PATIENT
  Age: 20 Year
  Sex: Female
  Weight: 70.3 kg

DRUGS (2)
  1. NUVARING [Suspect]
     Indication: CONTRACEPTION
     Dosage: NI VAGINAL, INSERT FOR 21 DAYS, REMOVE FOR 7 DAYS
     Route: 067
     Dates: start: 20070212, end: 20070226
  2. MULTI-VITAMIN [Concomitant]

REACTIONS (6)
  - DIZZINESS [None]
  - HEADACHE [None]
  - HYPOAESTHESIA [None]
  - SPEECH DISORDER [None]
  - VISION BLURRED [None]
  - VOMITING [None]
